FAERS Safety Report 5399117-7 (Version None)
Quarter: 2007Q3

REPORT INFORMATION
  Report Type: 
  Country: None (occurrence: None)
  Receive Date: 20070727
  Receipt Date: 20070115
  Transmission Date: 20080115
  Serious: No
  Sender: FDA-Public Use
  Company Number: A0635487A

PATIENT
  Age: 63 Year
  Sex: Male

DRUGS (1)
  1. TAGAMET HB 200 [Suspect]
     Dates: start: 20070112, end: 20070112

REACTIONS (3)
  - ANAL DISCOMFORT [None]
  - DRUG ADMINISTRATION ERROR [None]
  - EXPIRED DRUG ADMINISTERED [None]
